FAERS Safety Report 8488790-2 (Version None)
Quarter: 2012Q3

REPORT INFORMATION
  Report Type: 
  Country: None (occurrence: None)
  Receive Date: 20120705
  Receipt Date: 20120703
  Transmission Date: 20120928
  Serious: Yes (Life-Threatening)
  Sender: FDA-Public Use
  Company Number: US-PFIZER INC-2010US-36152

PATIENT
  Age: 58 Year
  Sex: Female

DRUGS (27)
  1. SERTRALINE HYDROCHLORIDE [Suspect]
     Indication: PSYCHOMOTOR RETARDATION
  2. DOPAMINE HCL [Suspect]
     Indication: ILL-DEFINED DISORDER
     Dosage: 2.5 MCG/KG/MINUTE
     Route: 065
  3. VALGANCICLOVIR [Concomitant]
     Route: 065
  4. FUROSEMIDE [Concomitant]
     Route: 065
  5. METHYLPHENIDATE [Suspect]
     Indication: PSYCHOMOTOR RETARDATION
  6. ERYTHROPOIETIN [Concomitant]
     Route: 065
  7. DOCUSATE SODIUM [Concomitant]
     Route: 065
  8. AMPHOTERICIN B [Concomitant]
     Route: 065
  9. SULFAMETHOXAZOLE AND TRIMETHOPRIM [Concomitant]
     Route: 065
  10. ISOPHANE INSULIN [Concomitant]
     Route: 065
  11. ASPIRIN [Concomitant]
     Route: 065
  12. PANTOPRAZOLE [Concomitant]
     Route: 065
  13. LEVOFLOXACIN [Concomitant]
     Route: 065
  14. SERTRALINE HYDROCHLORIDE [Suspect]
     Indication: DEPRESSION
     Dosage: 25 MG/DAY
     Route: 065
  15. TACROLIMUS [Concomitant]
     Route: 065
  16. VANCOMYCIN [Concomitant]
     Route: 065
  17. VERAPAMIL HCL [Suspect]
     Indication: SUPRAVENTRICULAR TACHYCARDIA
     Dosage: 40 MG DAILY
     Route: 048
  18. HEPARIN [Concomitant]
  19. MULTI-VITAMINS [Concomitant]
     Route: 065
  20. METHYLPHENIDATE [Suspect]
     Indication: DEPRESSION
     Dosage: 5 MG/DAY
     Route: 065
  21. PRAVASTATIN [Concomitant]
     Route: 065
  22. CALCIUM CITRATE [Concomitant]
     Route: 065
  23. SULFAMETHOXAZOLE [Concomitant]
     Route: 065
  24. CYCLOPHOSPHAMIDE [Concomitant]
     Route: 065
  25. FERROUS GLUCONATE [Concomitant]
     Route: 065
  26. PREDNISONE [Concomitant]
     Route: 065
  27. NYSTATIN [Concomitant]
     Route: 065

REACTIONS (5)
  - DRUG INTERACTION [None]
  - SUPRAVENTRICULAR TACHYCARDIA [None]
  - ATRIOVENTRICULAR BLOCK SECOND DEGREE [None]
  - HYPOTENSION [None]
  - CARDIAC ARREST [None]
